FAERS Safety Report 7563173-8 (Version None)
Quarter: 2011Q2

REPORT INFORMATION
  Report Type: 
  Country: None (occurrence: None)
  Receive Date: 20110615
  Receipt Date: 20110531
  Transmission Date: 20111010
  Serious: Yes (Other)
  Sender: FDA-Public Use
  Company Number: AUR-APL-2011-02334

PATIENT
  Age: 73 Year
  Sex: Male

DRUGS (8)
  1. GABAPENTIN [Suspect]
     Indication: PARAESTHESIA
     Dosage: 600MG-TID
  2. EZETIMIBE [Concomitant]
  3. GABAPENTIN [Suspect]
     Indication: PARAESTHESIA
     Dosage: 300MG-TID
  4. GABAPENTIN [Suspect]
     Indication: PARAESTHESIA
     Dosage: 300MG-QHS
  5. ATENOLOL [Concomitant]
  6. SIMAVSTATIN [Concomitant]
  7. ISOSORBIDE MONONITRATE [Concomitant]
  8. LISINOPRIL [Concomitant]

REACTIONS (6)
  - SOMNOLENCE [None]
  - EJACULATION FAILURE [None]
  - OEDEMA [None]
  - DIZZINESS [None]
  - ANORGASMIA [None]
  - INAPPROPRIATE SCHEDULE OF DRUG ADMINISTRATION [None]
